FAERS Safety Report 25383933 (Version 2)
Quarter: 2025Q2

REPORT INFORMATION
  Report Type: Spontaneous
  Country: CN (occurrence: CN)
  Receive Date: 20250602
  Receipt Date: 20250609
  Transmission Date: 20250717
  Serious: Yes (Other)
  Sender: ROCHE
  Company Number: CN-ROCHE-10000295719

PATIENT
  Age: 46 Year
  Sex: Female

DRUGS (4)
  1. ITOVEBI [Suspect]
     Active Substance: INAVOLISIB
     Indication: Breast cancer
     Route: 065
  2. CAPECITABINE [Suspect]
     Active Substance: CAPECITABINE
     Indication: Breast cancer
     Route: 048
  3. PALBOCICLIB [Suspect]
     Active Substance: PALBOCICLIB
     Indication: Breast cancer
     Route: 065
  4. FULVESTRANT [Suspect]
     Active Substance: FULVESTRANT
     Indication: Breast cancer
     Route: 065

REACTIONS (6)
  - Blood pressure increased [Unknown]
  - Disease progression [Unknown]
  - Drug ineffective [Unknown]
  - Ascites [Unknown]
  - Liver function test abnormal [Unknown]
  - Blood glucose increased [Unknown]
